FAERS Safety Report 8136494-8 (Version None)
Quarter: 2012Q1

REPORT INFORMATION
  Report Type: 
  Country: None (occurrence: None)
  Receive Date: 20120214
  Receipt Date: 20120208
  Transmission Date: 20120608
  Serious: Yes (Hospitalization, Other)
  Sender: FDA-Public Use
  Company Number: US-ROCHE-717513

PATIENT
  Sex: Female
  Weight: 59 kg

DRUGS (17)
  1. ACCUTANE [Suspect]
     Route: 048
     Dates: start: 19991027, end: 20000524
  2. MINOCYCLINE HCL [Concomitant]
     Indication: ACNE
     Route: 048
     Dates: start: 20080311, end: 20090127
  3. ACCUTANE [Suspect]
     Route: 048
  4. CLARAVIS [Suspect]
     Route: 048
  5. CLARAVIS [Suspect]
     Route: 048
  6. SOTRET [Suspect]
     Route: 048
  7. CLARAVIS [Suspect]
     Route: 048
  8. SINGULAIR [Concomitant]
  9. SOTRET [Suspect]
     Route: 048
     Dates: start: 20090104, end: 20090713
  10. ACCUTANE [Suspect]
     Route: 048
     Dates: start: 20040318, end: 20040401
  11. ACCUTANE [Suspect]
     Indication: ACNE
     Route: 048
  12. ACCUTANE [Suspect]
     Route: 048
     Dates: start: 20081105, end: 20090127
  13. ACCUTANE [Suspect]
     Route: 048
     Dates: start: 20090317, end: 20090713
  14. CLARAVIS [Suspect]
     Indication: ACNE
     Route: 048
  15. SOTRET [Suspect]
     Indication: ACNE
     Route: 048
  16. ZYRTEC [Concomitant]
  17. ORTHO TRI-CYCLEN [Concomitant]

REACTIONS (13)
  - COLITIS [None]
  - INFECTED CYST [None]
  - BLOOD TRIGLYCERIDES INCREASED [None]
  - DEPRESSION [None]
  - IRON DEFICIENCY ANAEMIA [None]
  - BLOOD CHOLESTEROL INCREASED [None]
  - CROHN'S DISEASE [None]
  - INFLAMMATORY BOWEL DISEASE [None]
  - ORAL HERPES [None]
  - PITYRIASIS ALBA [None]
  - MOOD ALTERED [None]
  - ANAL FISSURE [None]
  - DRY EYE [None]
